FAERS Safety Report 14188307 (Version 1)
Quarter: 2017Q4

REPORT INFORMATION
  Report Type: Spontaneous
  Country: US (occurrence: None)
  Receive Date: 20171113
  Receipt Date: 20171113
  Transmission Date: 20180321
  Serious: No
  Sender: FDA-Public Use
  Company Number: None

PATIENT
  Age: 84 Year
  Sex: Female

DRUGS (2)
  1. STIVARGA [Suspect]
     Active Substance: REGORAFENIB
     Indication: COLON CANCER
     Dosage: 40 MG TAKE 2 TABLETS BY MOUTH ONE TIME PER ORALLY (P.O.)
     Route: 048
     Dates: start: 20170627, end: 20171005
  2. STIVARGA [Suspect]
     Active Substance: REGORAFENIB
     Indication: METASTASES TO LIVER
     Dosage: 40 MG TAKE 2 TABLETS BY MOUTH ONE TIME PER ORALLY (P.O.)
     Route: 048
     Dates: start: 20170627, end: 20171005

REACTIONS (4)
  - Tongue ulceration [None]
  - Dyspnoea [None]
  - Stomatitis [None]
  - Blister [None]

NARRATIVE: CASE EVENT DATE: 20171110
